FAERS Safety Report 20709437 (Version 2)
Quarter: 2025Q3

REPORT INFORMATION
  Report Type: Report from Study
  Country: US (occurrence: US)
  Receive Date: 20220414
  Receipt Date: 20250822
  Transmission Date: 20251021
  Serious: Yes (Other)
  Sender: ABBVIE
  Company Number: US-ABBVIE-22K-163-4357851-00

PATIENT
  Age: 49 Year
  Sex: Female
  Weight: 56 kg

DRUGS (14)
  1. HUMIRA [Suspect]
     Active Substance: ADALIMUMAB
     Indication: Psoriatic arthropathy
     Dosage: CITRATE FREE
     Route: 058
     Dates: start: 20181002
  2. HUMIRA [Suspect]
     Active Substance: ADALIMUMAB
     Dosage: CITRATE FREE
     Route: 058
  3. GABAPENTIN [Concomitant]
     Active Substance: GABAPENTIN
     Indication: Neuropathy peripheral
  4. AMLODIPINE BESYLATE [Concomitant]
     Active Substance: AMLODIPINE BESYLATE
     Indication: Postural orthostatic tachycardia syndrome
  5. RITUXAN [Suspect]
     Active Substance: RITUXIMAB
     Indication: Autoimmune disorder
     Route: 042
     Dates: start: 2023, end: 2023
  6. MORPHINE [Concomitant]
     Active Substance: MORPHINE
     Indication: Pain
  7. PYRIDOSTIGMINE [Concomitant]
     Active Substance: PYRIDOSTIGMINE
     Indication: Paraesthesia
  8. COLLAGEN [Concomitant]
     Active Substance: COLLAGEN
     Indication: Supplementation therapy
  9. SYNTHROID [Concomitant]
     Active Substance: LEVOTHYROXINE SODIUM
     Indication: Hypothyroidism
  10. TALTZ [Suspect]
     Active Substance: IXEKIZUMAB
     Indication: Psoriatic arthropathy
     Route: 065
  11. Biotine [Concomitant]
     Indication: Vitamin supplementation
  12. CLONAZEPAM [Concomitant]
     Active Substance: CLONAZEPAM
     Indication: Feeling hot
  13. SINGULAIR [Concomitant]
     Active Substance: MONTELUKAST SODIUM
     Indication: Hypersensitivity
  14. VALACYCLOVIR [Concomitant]
     Active Substance: VALACYCLOVIR HYDROCHLORIDE
     Indication: Antiviral prophylaxis

REACTIONS (33)
  - Pharyngitis streptococcal [Recovered/Resolved]
  - Limb mass [Not Recovered/Not Resolved]
  - Finger deformity [Recovering/Resolving]
  - Arthropathy [Unknown]
  - Laboratory test abnormal [Unknown]
  - Muscle spasms [Not Recovered/Not Resolved]
  - Injection site urticaria [Recovered/Resolved]
  - Peripheral swelling [Not Recovered/Not Resolved]
  - Insomnia [Not Recovered/Not Resolved]
  - Joint dislocation [Recovered/Resolved]
  - Synovitis [Recovered/Resolved]
  - Os trigonum [Recovered/Resolved]
  - Costochondritis [Recovered/Resolved]
  - Joint dislocation [Recovered/Resolved]
  - Scar [Recovered/Resolved]
  - Joint swelling [Not Recovered/Not Resolved]
  - Exostosis [Not Recovered/Not Resolved]
  - Pain in extremity [Not Recovered/Not Resolved]
  - Arthralgia [Not Recovered/Not Resolved]
  - Nodule [Not Recovered/Not Resolved]
  - Injection site erythema [Recovered/Resolved]
  - Hepatic enzyme increased [Recovered/Resolved]
  - Fatigue [Recovered/Resolved]
  - Drug ineffective [Not Recovered/Not Resolved]
  - Vitamin D deficiency [Not Recovered/Not Resolved]
  - Oedema peripheral [Recovered/Resolved]
  - Malabsorption [Not Recovered/Not Resolved]
  - Blood sodium decreased [Not Recovered/Not Resolved]
  - Blood chloride decreased [Not Recovered/Not Resolved]
  - Musculoskeletal disorder [Not Recovered/Not Resolved]
  - Tonsillar disorder [Recovered/Resolved]
  - Tonsillitis [Recovered/Resolved]
  - Foot deformity [Recovering/Resolving]

NARRATIVE: CASE EVENT DATE: 20180101
